FAERS Safety Report 13792621 (Version 2)
Quarter: 2017Q4

REPORT INFORMATION
  Report Type: Report from Study
  Country: US (occurrence: US)
  Receive Date: 20170726
  Receipt Date: 20171018
  Transmission Date: 20180320
  Serious: Yes (Other)
  Sender: FDA-Public Use
  Company Number: US-AMGEN-USASL2017111139

PATIENT
  Sex: Female

DRUGS (1)
  1. ENBREL [Suspect]
     Active Substance: ETANERCEPT
     Indication: PSORIASIS
     Dosage: 50 MG, 2 TIMES/WK
     Route: 065

REACTIONS (7)
  - Malaise [Unknown]
  - Injection site bruising [Not Recovered/Not Resolved]
  - Therapy non-responder [Unknown]
  - Psoriasis [Unknown]
  - Injection site mass [Recovered/Resolved]
  - Skin exfoliation [Recovering/Resolving]
  - Gait inability [Unknown]
